FAERS Safety Report 13448970 (Version 1)
Quarter: 2017Q2

REPORT INFORMATION
  Report Type: Spontaneous
  Country: US (occurrence: US)
  Receive Date: 20170417
  Receipt Date: 20170417
  Transmission Date: 20170830
  Serious: No
  Sender: FDA-Public Use
  Company Number: US-SHIONOGI, INC-2017000127

PATIENT
  Age: 79 Year
  Sex: Female

DRUGS (3)
  1. OSPHENA [Suspect]
     Active Substance: OSPEMIFENE
     Indication: VULVOVAGINAL DRYNESS
     Dosage: 60 MG, QD
     Route: 048
     Dates: start: 20170202
  2. OSPHENA [Suspect]
     Active Substance: OSPEMIFENE
     Indication: OFF LABEL USE
  3. ANASTROZOLE. [Concomitant]
     Active Substance: ANASTROZOLE
     Indication: PRECANCEROUS CELLS PRESENT
     Dosage: UNK
     Route: 065

REACTIONS (5)
  - Faeces discoloured [Unknown]
  - Hot flush [Recovered/Resolved]
  - Malaise [Recovered/Resolved]
  - Off label use [Unknown]
  - Labelled drug-disease interaction medication error [Unknown]

NARRATIVE: CASE EVENT DATE: 20170202
